FAERS Safety Report 18352828 (Version 1)
Quarter: 2020Q4

REPORT INFORMATION
  Report Type: Spontaneous
  Country: US (occurrence: US)
  Receive Date: 20201006
  Receipt Date: 20201006
  Transmission Date: 20210114
  Serious: No
  Sender: FDA-Public Use
  Company Number: US-ALLERGAN-1941827US

PATIENT
  Age: 41 Year
  Sex: Female

DRUGS (5)
  1. LINZESS [Suspect]
     Active Substance: LINACLOTIDE
     Dosage: 145 ?G, QD
     Route: 048
     Dates: start: 2018, end: 201909
  2. LAXATIVE [Concomitant]
     Active Substance: UNSPECIFIED INGREDIENT
     Indication: BOWEL MOVEMENT IRREGULARITY
     Dosage: DOUBLE DOSE
  3. LAXATIVE [Concomitant]
     Active Substance: UNSPECIFIED INGREDIENT
     Dosage: UNK
  4. NEXIUM [Concomitant]
     Active Substance: ESOMEPRAZOLE MAGNESIUM
     Indication: DYSPEPSIA
     Dosage: UNK
     Dates: start: 2010
  5. LINZESS [Suspect]
     Active Substance: LINACLOTIDE
     Indication: BOWEL MOVEMENT IRREGULARITY
     Dosage: 145 ?G, QD
     Route: 048
     Dates: start: 2019

REACTIONS (3)
  - Drug ineffective for unapproved indication [Unknown]
  - Off label use [Unknown]
  - Product physical issue [Unknown]

NARRATIVE: CASE EVENT DATE: 2018
